FAERS Safety Report 25876454 (Version 1)
Quarter: 2025Q4

REPORT INFORMATION
  Report Type: Spontaneous
  Country: ZA (occurrence: ZA)
  Receive Date: 20251003
  Receipt Date: 20251003
  Transmission Date: 20260117
  Serious: Yes (Hospitalization, Other)
  Sender: NEXUS PHARMACEUTICALS
  Company Number: ZA-Nexus Pharma-000490

PATIENT
  Age: 37 Year
  Sex: Male

DRUGS (1)
  1. ARSENIC TRIOXIDE [Suspect]
     Active Substance: ARSENIC TRIOXIDE

REACTIONS (6)
  - Polyneuropathy [Unknown]
  - Chronic arsenic toxicity [Unknown]
  - Paralysis [Unknown]
  - Abdominal pain [Unknown]
  - Alopecia [Unknown]
  - Leukonychia [Unknown]
